FAERS Safety Report 11594277 (Version 1)
Quarter: 2015Q4

REPORT INFORMATION
  Report Type: Spontaneous
  Country: US (occurrence: US)
  Receive Date: 20151005
  Receipt Date: 20151005
  Transmission Date: 20160304
  Serious: No
  Sender: FDA-Public Use
  Company Number: US-BAYER-2015-432023

PATIENT
  Age: 6 Year
  Sex: Female
  Weight: 15.87 kg

DRUGS (2)
  1. OXYTROL FOR WOMEN [Suspect]
     Active Substance: OXYBUTYNIN
     Indication: NEUROGENIC BLADDER
     Dosage: 1 PATCH IN EVERY 4 DAYS
     Route: 061
     Dates: start: 201507
  2. FLINTSTONES GUMMIES [Concomitant]
     Active Substance: VITAMINS

REACTIONS (2)
  - Off label use [None]
  - Product use issue [None]
